FAERS Safety Report 17554668 (Version 1)
Quarter: 2020Q1

REPORT INFORMATION
  Report Type: Other
  Country: ES (occurrence: ES)
  Receive Date: 20200318
  Receipt Date: 20200318
  Transmission Date: 20200409
  Serious: Yes (Other)
  Sender: FDA-Public Use
  Company Number: ES-AJANTA PHARMA USA INC.-2081728

PATIENT
  Age: 49 Year
  Sex: Male

DRUGS (7)
  1. DAUNORUBICIN HYDROCHLORIDE. [Concomitant]
     Active Substance: DAUNORUBICIN HYDROCHLORIDE
     Route: 065
  2. VINCRISTINE SULFATE. [Suspect]
     Active Substance: VINCRISTINE SULFATE
     Route: 065
  3. METHYLPREDNISOLONE. [Concomitant]
     Active Substance: METHYLPREDNISOLONE
     Route: 042
  4. FLUCONAZOLE. [Concomitant]
     Active Substance: FLUCONAZOLE
  5. IMATINIB MESYLATE. [Concomitant]
     Active Substance: IMATINIB MESYLATE
     Route: 065
  6. POSACONAZOLE [Suspect]
     Active Substance: POSACONAZOLE
     Route: 065
  7. VORICONAZOLE. [Suspect]
     Active Substance: VORICONAZOLE
     Indication: ANTIFUNGAL PROPHYLAXIS

REACTIONS (5)
  - Drug interaction [Recovered/Resolved]
  - Ileus paralytic [Unknown]
  - Inappropriate antidiuretic hormone secretion [Recovered/Resolved]
  - Toxicity to various agents [Unknown]
  - Enteritis [Unknown]
